FAERS Safety Report 6154001-6 (Version None)
Quarter: 2009Q2

REPORT INFORMATION
  Report Type: 
  Country: None (occurrence: None)
  Receive Date: 20090414
  Receipt Date: 20090407
  Transmission Date: 20091009
  Serious: Yes (Other)
  Sender: FDA-Public Use
  Company Number: PHHY2009JP05072

PATIENT
  Sex: Male
  Weight: 53 kg

DRUGS (3)
  1. DIOVAN [Suspect]
     Indication: HYPERTENSION
     Dosage: 120 MG DAILY
     Route: 048
     Dates: start: 20070822
  2. EUGLUCON [Concomitant]
     Dosage: 7.5 MG
     Route: 048
     Dates: start: 20040128
  3. MEVALOTIN [Concomitant]
     Dosage: 5 MG
     Route: 048
     Dates: start: 20040128

REACTIONS (3)
  - ALBUMIN URINE PRESENT [None]
  - BLOOD GLUCOSE INCREASED [None]
  - GLUCOSE URINE PRESENT [None]
